FAERS Safety Report 21553707 (Version 1)
Quarter: 2022Q4

REPORT INFORMATION
  Report Type: Report from Study
  Country: US (occurrence: US)
  Receive Date: 20221104
  Receipt Date: 20221104
  Transmission Date: 20230112
  Serious: No
  Sender: FDA-Public Use
  Company Number: US-ABBVIE-4152535

PATIENT
  Sex: Male

DRUGS (5)
  1. HUMIRA [Suspect]
     Active Substance: ADALIMUMAB
     Indication: Uveitis
     Route: 058
  2. HUMIRA [Suspect]
     Active Substance: ADALIMUMAB
     Indication: Ankylosing spondylitis
  3. Pfizer/BioNTech covid-19 vaccination [Concomitant]
     Indication: COVID-19 immunisation
     Dosage: FIRST DOSE, FREQUENCY ONE IN ONCE
     Route: 030
     Dates: start: 20210318, end: 20210318
  4. Pfizer/BioNTech covid-19 vaccination [Concomitant]
     Indication: COVID-19 immunisation
     Dosage: SECOND DOSE, FREQUENCY ONE IN ONCE
     Route: 030
     Dates: start: 20210401, end: 20210401
  5. Pfizer/BioNTech covid-19 vaccination [Concomitant]
     Indication: COVID-19 immunisation
     Dosage: THIRD BOOSTER DOSE, FREQUENCY ONE IN ONCE
     Route: 030
     Dates: start: 20211014, end: 20211014

REACTIONS (4)
  - Condition aggravated [Recovered/Resolved]
  - Intervertebral disc degeneration [Unknown]
  - Back pain [Unknown]
  - Bone disorder [Unknown]
